FAERS Safety Report 24959257 (Version 3)
Quarter: 2025Q1

REPORT INFORMATION
  Report Type: Spontaneous
  Country: GB (occurrence: GB)
  Receive Date: 20250212
  Receipt Date: 20250326
  Transmission Date: 20250408
  Serious: Yes (Hospitalization)
  Sender: TEVA
  Company Number: GB-SANDOZ-SDZ2025GB006958

PATIENT
  Age: 34 Year
  Sex: Male

DRUGS (2)
  1. CLARITHROMYCIN [Suspect]
     Active Substance: CLARITHROMYCIN
     Indication: Infection
     Route: 065
     Dates: start: 20240705
  2. CLARITHROMYCIN [Suspect]
     Active Substance: CLARITHROMYCIN
     Indication: Infection
     Route: 065

REACTIONS (5)
  - Cellulitis [Unknown]
  - Liver function test abnormal [Unknown]
  - Pain [Unknown]
  - Emotional distress [Unknown]
  - Jaundice [Unknown]

NARRATIVE: CASE EVENT DATE: 20240705
